FAERS Safety Report 11793252 (Version 2)
Quarter: 2015Q4

REPORT INFORMATION
  Report Type: Spontaneous
  Country: US (occurrence: US)
  Receive Date: 20151202
  Receipt Date: 20151216
  Transmission Date: 20160305
  Serious: No
  Sender: FDA-Public Use
  Company Number: US-PFIZER INC-2015282318

PATIENT
  Age: 65 Year
  Sex: Female
  Weight: 72.6 kg

DRUGS (17)
  1. AMBIEN [Concomitant]
     Active Substance: ZOLPIDEM TARTRATE
     Indication: SLEEP DISORDER
     Dosage: UNK
  2. ZOLPIDEM [Concomitant]
     Active Substance: ZOLPIDEM\ZOLPIDEM TARTRATE
     Indication: SLEEP DISORDER
     Dosage: 10 MG, 1X/DAY
     Route: 048
  3. NEXIUM [Suspect]
     Active Substance: ESOMEPRAZOLE MAGNESIUM
     Dosage: 40 MG, 1X/DAY
     Route: 048
     Dates: end: 20151116
  4. NEXIUM [Suspect]
     Active Substance: ESOMEPRAZOLE MAGNESIUM
     Indication: GASTROOESOPHAGEAL REFLUX DISEASE
     Dosage: 2 DF, UNK
     Route: 048
  5. NEXIUM 24HR [Suspect]
     Active Substance: ESOMEPRAZOLE MAGNESIUM
     Dosage: UNK
     Route: 048
     Dates: start: 20151201
  6. PAXIL [Concomitant]
     Active Substance: PAROXETINE HYDROCHLORIDE
     Dosage: 10 MG, 1X/DAY
     Route: 048
  7. AMLODIPINE BESYLATE. [Concomitant]
     Active Substance: AMLODIPINE BESYLATE
     Indication: CARDIAC DISORDER
     Dosage: 2.5 MG, 1X/DAY
     Route: 048
  8. NEXIUM [Suspect]
     Active Substance: ESOMEPRAZOLE MAGNESIUM
     Indication: DYSPEPSIA
     Dosage: 40 MG, 1X/DAY
     Route: 048
     Dates: start: 1989, end: 20131114
  9. NEXIUM [Suspect]
     Active Substance: ESOMEPRAZOLE MAGNESIUM
     Indication: DISCOMFORT
     Dosage: 20 MG, 1X/DAY
     Route: 048
     Dates: end: 20150210
  10. NEXIUM [Suspect]
     Active Substance: ESOMEPRAZOLE MAGNESIUM
     Dosage: 40 MG, UNK
     Route: 048
     Dates: start: 20150809
  11. BENADRYL [Suspect]
     Active Substance: DIPHENHYDRAMINE HYDROCHLORIDE
     Dosage: UNK, EVERY 4 HRS
     Route: 065
  12. NEXIUM 24HR [Suspect]
     Active Substance: ESOMEPRAZOLE MAGNESIUM
     Indication: GASTROOESOPHAGEAL REFLUX DISEASE
     Dosage: 20 MG, UNK
     Route: 048
     Dates: start: 20150810
  13. VENLAFAXINE ER [Concomitant]
     Active Substance: VENLAFAXINE HYDROCHLORIDE
     Dosage: 37 MG, 2X/DAY
  14. ALPRAZOLAM. [Suspect]
     Active Substance: ALPRAZOLAM
     Indication: NERVOUS SYSTEM DISORDER
     Dosage: 1 DF, UNK
     Route: 048
     Dates: start: 201311, end: 201311
  15. AMLODIPINE BESYLATE. [Concomitant]
     Active Substance: AMLODIPINE BESYLATE
     Indication: BLOOD PRESSURE MEASUREMENT
  16. ASPIRIN. [Concomitant]
     Active Substance: ASPIRIN
     Indication: ELDERLY
     Dosage: 8 MG, 1X/DAY
     Route: 048
  17. VENLAFAXINE ER [Concomitant]
     Active Substance: VENLAFAXINE HYDROCHLORIDE
     Indication: DISTURBANCE IN SOCIAL BEHAVIOUR
     Dosage: 37.5 UNK, DAILY

REACTIONS (23)
  - Abdominal pain upper [Not Recovered/Not Resolved]
  - Dysphagia [Unknown]
  - Sleep disorder [Unknown]
  - Hypoacusis [Unknown]
  - Therapy cessation [Not Recovered/Not Resolved]
  - Intentional product misuse [Unknown]
  - Restlessness [Unknown]
  - Weight decreased [Not Recovered/Not Resolved]
  - Nausea [Unknown]
  - Formication [Recovered/Resolved]
  - Drug dose omission [Not Recovered/Not Resolved]
  - Upper respiratory tract congestion [Unknown]
  - Product use issue [Unknown]
  - Abdominal discomfort [Unknown]
  - Intentional product use issue [Unknown]
  - Frustration [Unknown]
  - Asthenia [Unknown]
  - Dyspepsia [Not Recovered/Not Resolved]
  - Drug ineffective [Not Recovered/Not Resolved]
  - Malaise [Unknown]
  - Drug dispensing error [Unknown]
  - Hypertension [Unknown]
  - Off label use [Unknown]

NARRATIVE: CASE EVENT DATE: 2001
